FAERS Safety Report 9774300 (Version 1)
Quarter: 2013Q4

REPORT INFORMATION
  Report Type: Report from Study
  Country: NL (occurrence: NL)
  Receive Date: 20131220
  Receipt Date: 20131220
  Transmission Date: 20140711
  Serious: Yes (Death, Hospitalization)
  Sender: FDA-Public Use
  Company Number: NL-ROCHE-1321339

PATIENT
  Age: 59 Year
  Sex: Male
  Weight: 87 kg

DRUGS (15)
  1. RITUXIMAB [Suspect]
     Indication: MALIGNANT LYMPHOID NEOPLASM
     Dosage: LAST DOSE PRIOR TO SAE: 09/DEC/2013
     Route: 042
     Dates: start: 20131202
  2. PREDNISOLON [Suspect]
     Indication: MALIGNANT LYMPHOID NEOPLASM
     Dosage: LAST DOSE PRIOR TO SAE: 06/DEC/2013
     Route: 042
     Dates: start: 20131203
  3. METHOTREXATE [Suspect]
     Indication: MALIGNANT LYMPHOID NEOPLASM
     Dosage: LAST DOSE PRIOR TO SAE: 03/DEC/2013
     Route: 042
     Dates: start: 20131203
  4. TENIPOSIDE [Suspect]
     Indication: MALIGNANT LYMPHOID NEOPLASM
     Dosage: LAST DOSE PRIOR TO SAE: 05/DEC/2013
     Route: 042
     Dates: start: 20131204
  5. CARMUSTINE [Suspect]
     Indication: MALIGNANT LYMPHOID NEOPLASM
     Dosage: LAST DOSE PRIOR TO SAE: 06/DEC/2013
     Route: 042
     Dates: start: 20131206
  6. DEXAMETHASON [Concomitant]
     Route: 048
  7. ENALAPRIL [Concomitant]
     Route: 048
  8. FLUCONAZOLE [Concomitant]
     Route: 048
  9. HALOPERIDOL [Concomitant]
     Route: 048
  10. NOVORAPID [Concomitant]
     Indication: DIABETES MELLITUS
     Route: 058
  11. MOVICOLON [Concomitant]
     Indication: CONSTIPATION
     Dosage: 1 SACHET
     Route: 048
  12. NIFEDIPINE [Concomitant]
     Route: 048
  13. OMEPRAZOL [Concomitant]
     Route: 048
  14. OXAZEPAM [Concomitant]
     Route: 048
  15. ZELITREX [Concomitant]
     Route: 048

REACTIONS (1)
  - Bone marrow failure [Fatal]
